FAERS Safety Report 14249641 (Version 1)
Quarter: 2017Q4

REPORT INFORMATION
  Report Type: Spontaneous
  Country: US (occurrence: None)
  Receive Date: 20171204
  Receipt Date: 20171204
  Transmission Date: 20180321
  Serious: Yes (Hospitalization)
  Sender: FDA-Public Use
  Company Number: None

PATIENT
  Age: 40 Year
  Sex: Female
  Weight: 73.4 kg

DRUGS (1)
  1. MIRENA [Suspect]
     Active Substance: LEVONORGESTREL
     Dates: start: 20171129, end: 20171201

REACTIONS (5)
  - Muscle spasms [None]
  - Pain [None]
  - Device dislocation [None]
  - Perforation [None]
  - Complication associated with device [None]

NARRATIVE: CASE EVENT DATE: 20171201
